FAERS Safety Report 11404717 (Version 5)
Quarter: 2016Q2

REPORT INFORMATION
  Report Type: Spontaneous
  Country: US (occurrence: US)
  Receive Date: 20150821
  Receipt Date: 20160630
  Transmission Date: 20160815
  Serious: No
  Sender: FDA-Public Use
  Company Number: US-ACTELION PHARMACEUTICALS US, INC.-A-US2014-108377

PATIENT
  Age: 63 Year
  Sex: Female

DRUGS (4)
  1. VELETRI [Suspect]
     Active Substance: EPOPROSTENOL
     Indication: PULMONARY ARTERIAL HYPERTENSION
     Dosage: 17 NG/KG, PER MIN
     Route: 042
     Dates: start: 20120518
  2. OPSUMIT [Suspect]
     Active Substance: MACITENTAN
     Indication: PULMONARY ARTERIAL HYPERTENSION
     Route: 048
  3. RIOCIGUAT [Suspect]
     Active Substance: RIOCIGUAT
     Indication: PRODUCT USED FOR UNKNOWN INDICATION
     Dosage: 2.5 MG, UNK
     Route: 065
  4. VELETRI [Suspect]
     Active Substance: EPOPROSTENOL
     Dosage: 22 NG/KG, PER MIN
     Route: 042

REACTIONS (15)
  - Psoriatic arthropathy [Unknown]
  - Alopecia [Unknown]
  - Dyspepsia [Unknown]
  - Malaise [Recovering/Resolving]
  - Insomnia [Unknown]
  - Pain in jaw [Unknown]
  - Abdominal discomfort [Unknown]
  - Vomiting [Recovering/Resolving]
  - Fatigue [Unknown]
  - Hypotension [Unknown]
  - Flushing [Unknown]
  - Asthenia [Not Recovered/Not Resolved]
  - Dizziness [Recovering/Resolving]
  - Pain in extremity [Unknown]
  - Psoriasis [Unknown]
